FAERS Safety Report 4637147-0 (Version None)
Quarter: 2005Q2

REPORT INFORMATION
  Report Type: 
  Country: None (occurrence: None)
  Receive Date: 20050325
  Receipt Date: 20041221
  Transmission Date: 20051028
  Serious: No
  Sender: FDA-Public Use
  Company Number: USA040977058

PATIENT
  Age: 77 Year
  Sex: Female

DRUGS (3)
  1. FORTEO [Suspect]
     Indication: OSTEOPOROSIS
     Dosage: 20 UG DAY
     Dates: start: 20040827
  2. SINEMET [Concomitant]
  3. STOMACH MEDICINE [Concomitant]

REACTIONS (9)
  - ABDOMINAL PAIN UPPER [None]
  - BONE PAIN [None]
  - DIFFICULTY IN WALKING [None]
  - DYSPHAGIA [None]
  - HYPERTENSION [None]
  - INJECTION SITE HAEMORRHAGE [None]
  - MYALGIA [None]
  - PAIN [None]
  - PAIN IN EXTREMITY [None]
